FAERS Safety Report 24095091 (Version 1)
Quarter: 2024Q3

REPORT INFORMATION
  Report Type: Other
  Country: SA (occurrence: SA)
  Receive Date: 20240716
  Receipt Date: 20240716
  Transmission Date: 20241017
  Serious: Yes (Hospitalization, Other)
  Sender: DEXCEL
  Company Number: SA-DEXPHARM-2024-2363

PATIENT
  Age: 40 Year
  Sex: Female

DRUGS (2)
  1. LEVETIRACETAM [Suspect]
     Active Substance: LEVETIRACETAM
     Indication: Generalised tonic-clonic seizure
     Route: 048
  2. Vitamin B complex tab [Concomitant]
     Indication: Product used for unknown indication
     Dosage: OVERDOSE
     Route: 048

REACTIONS (1)
  - Psoriasis [Unknown]
